FAERS Safety Report 10120755 (Version 2)
Quarter: 2015Q1

REPORT INFORMATION
  Report Type: Other
  Country: US (occurrence: US)
  Receive Date: 20140425
  Receipt Date: 20150312
  Transmission Date: 20150720
  Serious: Yes (Death, Hospitalization, Other)
  Sender: FDA-Public Use
  Company Number: US-GSKPPD-2014GSK007208

PATIENT
  Age: 69 Year
  Sex: Male

DRUGS (10)
  1. AMIODARONE [Concomitant]
     Active Substance: AMIODARONE
  2. ASA [Concomitant]
     Active Substance: ASPIRIN
  3. DIGOXIN. [Concomitant]
     Active Substance: DIGOXIN
  4. NORVASC [Concomitant]
     Active Substance: AMLODIPINE BESYLATE
  5. COUMADIN [Concomitant]
     Active Substance: WARFARIN SODIUM
  6. HEPARIN [Concomitant]
     Active Substance: HEPARIN SODIUM
     Route: 041
  7. AVANDIA [Suspect]
     Active Substance: ROSIGLITAZONE MALEATE
     Indication: DIABETES MELLITUS
     Dosage: AVANDIA WAS NOT LISTED AMONG THE PATIENTS DISCHARGE RECORDS.
     Route: 048
  8. SIMVASTATIN. [Concomitant]
     Active Substance: SIMVASTATIN
  9. METOPROLOL [Concomitant]
     Active Substance: METOPROLOL
  10. IMDUR [Concomitant]
     Active Substance: ISOSORBIDE MONONITRATE

REACTIONS (2)
  - Right ventricular failure [Fatal]
  - Myocardial infarction [Recovered/Resolved]

NARRATIVE: CASE EVENT DATE: 20081201
